FAERS Safety Report 16745927 (Version 1)
Quarter: 2019Q3

REPORT INFORMATION
  Report Type: Spontaneous
  Country: US (occurrence: US)
  Receive Date: 20190827
  Receipt Date: 20190827
  Transmission Date: 20191005
  Serious: Yes (Other)
  Sender: FDA-Public Use
  Company Number: US-ASTRAZENECA-2019SF21290

PATIENT
  Sex: Male
  Weight: 93 kg

DRUGS (8)
  1. GAPAPENTIN [Concomitant]
     Indication: ANXIETY DISORDER
  2. SEROQUEL XR [Suspect]
     Active Substance: QUETIAPINE FUMARATE
     Indication: BIPOLAR DISORDER
     Route: 048
  3. SEROQUEL XR [Suspect]
     Active Substance: QUETIAPINE FUMARATE
     Indication: BIPOLAR DISORDER
     Dosage: (MANUFACTURED BY ACCORD PHARMACEUTICALS)
     Route: 048
  4. SEROQUEL XR [Suspect]
     Active Substance: QUETIAPINE FUMARATE
     Indication: ANXIETY DISORDER
     Dosage: (MANUFACTURED BY ACCORD PHARMACEUTICALS)
     Route: 048
  5. SEROQUEL XR [Suspect]
     Active Substance: QUETIAPINE FUMARATE
     Indication: ANXIETY DISORDER
     Dosage: 400 MG, 2 TABLES AT NIGHT (GENERIC MANUFACTURED BY PERRIGO PHARMACEUTICALS)
     Route: 048
     Dates: end: 201904
  6. GAPAPENTIN [Concomitant]
     Indication: BIPOLAR DISORDER
  7. SEROQUEL XR [Suspect]
     Active Substance: QUETIAPINE FUMARATE
     Indication: ANXIETY DISORDER
     Route: 048
  8. SEROQUEL XR [Suspect]
     Active Substance: QUETIAPINE FUMARATE
     Indication: BIPOLAR DISORDER
     Dosage: 400 MG, 2 TABLES AT NIGHT (GENERIC MANUFACTURED BY PERRIGO PHARMACEUTICALS)
     Route: 048
     Dates: end: 201904

REACTIONS (5)
  - Insomnia [Not Recovered/Not Resolved]
  - Diarrhoea [Not Recovered/Not Resolved]
  - Weight decreased [Not Recovered/Not Resolved]
  - Suicidal ideation [Not Recovered/Not Resolved]
  - Nightmare [Not Recovered/Not Resolved]
